APPROVED DRUG PRODUCT: SODIUM FLUORIDE F-18
Active Ingredient: SODIUM FLUORIDE F-18
Strength: 10-200mCi/ML
Dosage Form/Route: INJECTABLE;INTRAVENOUS
Application: A203780 | Product #001 | TE Code: AP
Applicant: CARDINAL HEALTH 414 LLC CARDINAL HEALTH NUCLEAR PHARMACY SERVICES 
Approved: Jul 30, 2015 | RLD: No | RS: No | Type: RX